FAERS Safety Report 5486485-0 (Version None)
Quarter: 2007Q4

REPORT INFORMATION
  Report Type: 
  Country: None (occurrence: None)
  Receive Date: 20071016
  Receipt Date: 20071002
  Transmission Date: 20080405
  Serious: Yes (Other)
  Sender: FDA-Public Use
  Company Number: B0490908A

PATIENT
  Age: 15 Month
  Sex: Male

DRUGS (2)
  1. ENGERIX-B [Suspect]
     Dosage: 10MCG SINGLE DOSE
     Route: 065
     Dates: start: 20070912, end: 20070912
  2. AUGMENTIN '125' [Suspect]
     Indication: INFECTION
     Route: 048
     Dates: start: 20070919, end: 20070901

REACTIONS (3)
  - ERYTHEMA MULTIFORME [None]
  - INFECTION [None]
  - SKIN LESION [None]
